FAERS Safety Report 8343224-3 (Version None)
Quarter: 2012Q2

REPORT INFORMATION
  Report Type: 
  Country: None (occurrence: None)
  Receive Date: 20120508
  Receipt Date: 20101109
  Transmission Date: 20120825
  Serious: Yes (Other)
  Sender: FDA-Public Use
  Company Number: AU-GENZYME-MOZO-1000450

PATIENT
  Sex: Female
  Weight: 58.05 kg

DRUGS (1)
  1. MOZOBIL [Suspect]
     Indication: HAEMATOPOIETIC STEM CELL MOBILISATION
     Route: 065

REACTIONS (2)
  - HERPES ZOSTER [None]
  - BLOOD STEM CELL HARVEST FAILURE [None]
